FAERS Safety Report 8197618-X (Version None)
Quarter: 2012Q1

REPORT INFORMATION
  Report Type: 
  Country: None (occurrence: None)
  Receive Date: 20120309
  Receipt Date: 20120229
  Transmission Date: 20120608
  Serious: Yes (Hospitalization, Congenital Anomaly)
  Sender: FDA-Public Use
  Company Number: DE-TEVA-325262GER

PATIENT
  Sex: Male
  Weight: 2.25 kg

DRUGS (6)
  1. OMEPRAZOLE [Concomitant]
     Route: 064
  2. BUDENOFALK 3 MG [Concomitant]
     Route: 064
  3. FOLIO FORTE [Concomitant]
     Route: 064
  4. NUX VOMICA-HEVERT [Concomitant]
     Route: 064
  5. PREDNISOLONE [Suspect]
     Route: 064
  6. SALOFALK 500 [Concomitant]
     Route: 064

REACTIONS (2)
  - PREMATURE BABY [None]
  - GASTROSCHISIS [None]
